FAERS Safety Report 15699111 (Version 1)
Quarter: 2018Q4

REPORT INFORMATION
  Report Type: Spontaneous
  Country: US (occurrence: US)
  Receive Date: 20181207
  Receipt Date: 20181207
  Transmission Date: 20190205
  Serious: Yes (Other)
  Sender: FDA-Public Use
  Company Number: None

PATIENT
  Age: 54 Year
  Sex: Female
  Weight: 76.5 kg

DRUGS (4)
  1. MONTELUKAST [Concomitant]
     Active Substance: MONTELUKAST SODIUM
  2. TOPIRAMATE. [Concomitant]
     Active Substance: TOPIRAMATE
  3. OMEPRAZOLE DR 40MG CAPSULE GENERIC FOR PRILOSEC [Suspect]
     Active Substance: OMEPRAZOLE
     Indication: GASTROOESOPHAGEAL REFLUX DISEASE
     Dosage: ?          QUANTITY:90 CAPSULE(S);?
     Route: 048
  4. OMEPRAZOLE. [Concomitant]
     Active Substance: OMEPRAZOLE

REACTIONS (3)
  - Product substitution issue [None]
  - Gastrooesophageal reflux disease [None]
  - Product physical issue [None]

NARRATIVE: CASE EVENT DATE: 20181124
